FAERS Safety Report 8022856-6 (Version None)
Quarter: 2012Q1

REPORT INFORMATION
  Report Type: 
  Country: None (occurrence: None)
  Receive Date: 20120104
  Receipt Date: 20111227
  Transmission Date: 20120608
  Serious: Yes (Hospitalization, Other)
  Sender: FDA-Public Use
  Company Number: US-ASTRAZENECA-2011SE76617

PATIENT
  Age: 86 Year
  Sex: Female
  Weight: 78 kg

DRUGS (14)
  1. NORVASC [Concomitant]
  2. B1 VITAMIN [Concomitant]
  3. TOPROL-XL [Suspect]
     Route: 048
  4. BROMOCRIPTIN [Concomitant]
  5. LIQUID POTASSIUM [Concomitant]
     Dosage: 1 TABLE SPOON
  6. SYMBICORT [Suspect]
     Dosage: 80/4.5 MG, 2 PUFFS, BID
     Route: 055
  7. LISINOPRIL [Concomitant]
  8. CYMBALTA [Concomitant]
  9. DIGOXIN [Concomitant]
  10. COUMADIN [Concomitant]
  11. LASIX [Concomitant]
  12. LIPITOR [Concomitant]
  13. FOLIC ACID [Concomitant]
  14. RITALIN [Concomitant]

REACTIONS (6)
  - WHEEZING [None]
  - BRAIN INJURY [None]
  - DISABLED RELATIVE [None]
  - SPEECH DISORDER [None]
  - CEREBROVASCULAR ACCIDENT [None]
  - WRONG TECHNIQUE IN DRUG USAGE PROCESS [None]
